FAERS Safety Report 8274899-5 (Version None)
Quarter: 2012Q2

REPORT INFORMATION
  Report Type: 
  Country: None (occurrence: None)
  Receive Date: 20120411
  Receipt Date: 20120405
  Transmission Date: 20120825
  Serious: Yes (Other)
  Sender: FDA-Public Use
  Company Number: US-AMGEN-USASP2011054392

PATIENT
  Age: 73 Year
  Sex: Female
  Weight: 59.41 kg

DRUGS (13)
  1. ATENOLOL [Concomitant]
  2. BENICAR [Concomitant]
  3. DICYCLOMINE [Concomitant]
  4. SIMVASTATIN [Concomitant]
  5. OXYBUTYNIN [Concomitant]
  6. VITAMIN D3 PLUS [Concomitant]
  7. AMLODIPINE BESYLATE [Concomitant]
  8. TRIAMTERENE AND HYDROCHLOROTHIAZIDE [Concomitant]
  9. PROLIA [Suspect]
     Indication: OSTEOPOROSIS POSTMENOPAUSAL
     Dosage: 60 MG, Q6MO
     Route: 058
     Dates: start: 20110909
  10. ASPIRIN [Concomitant]
     Dosage: 1 MG, QD
  11. CALCIUM PLUS D3 [Concomitant]
  12. PROLIA [Suspect]
     Dosage: 60 MG, Q6MO
     Dates: start: 20110201
  13. B12                                /00056201/ [Concomitant]

REACTIONS (4)
  - NASOPHARYNGITIS [None]
  - MALAISE [None]
  - HYPERSENSITIVITY [None]
  - PAIN [None]
